FAERS Safety Report 24678213 (Version 1)
Quarter: 2024Q4

REPORT INFORMATION
  Report Type: Spontaneous
  Country: US (occurrence: US)
  Receive Date: 20241129
  Receipt Date: 20241129
  Transmission Date: 20250115
  Serious: Yes (Other)
  Sender: SAMSUNG BIOEPIS
  Company Number: US-SAMSUNG BIOEPIS-SB-2024-35540

PATIENT
  Age: 59 Year
  Sex: Male

DRUGS (2)
  1. INFLIXIMAB [Suspect]
     Active Substance: INFLIXIMAB
     Indication: Product used for unknown indication
     Dosage: FOR 3  MONTHS;
  2. METHOTREXATE [Suspect]
     Active Substance: METHOTREXATE
     Indication: Product used for unknown indication
     Dosage: FOR 6 MONTHS;

REACTIONS (5)
  - Necrotising myositis [Unknown]
  - Multiple organ dysfunction syndrome [Recovering/Resolving]
  - Septic shock [Unknown]
  - Acute kidney injury [Recovering/Resolving]
  - Microsporidia infection [Unknown]
